FAERS Safety Report 7638248-5 (Version None)
Quarter: 2011Q3

REPORT INFORMATION
  Report Type: 
  Country: None (occurrence: None)
  Receive Date: 20110720
  Receipt Date: 20110712
  Transmission Date: 20111222
  Serious: Yes (Hospitalization)
  Sender: FDA-Public Use
  Company Number: 2011SP025568

PATIENT
  Age: 44 Year
  Sex: Male
  Weight: 113.5 kg

DRUGS (42)
  1. ACETAMINOPHEN [Concomitant]
  2. ARIPIRAZOLE [Concomitant]
  3. CEPACOL [Concomitant]
  4. HYDROXYZINE HCL [Concomitant]
  5. LAMOTRIGINE [Concomitant]
  6. LORAZEPAM [Concomitant]
  7. PRAZOSIN HCL [Concomitant]
  8. REMERON [Suspect]
     Indication: DEPRESSION
     Dosage: SEE IMAGE
     Route: 048
     Dates: start: 20110520
  9. REMERON [Suspect]
     Indication: DEPRESSION
     Dosage: SEE IMAGE
     Route: 048
     Dates: start: 20110112, end: 20110113
  10. REMERON [Suspect]
     Indication: DEPRESSION
     Dosage: SEE IMAGE
     Route: 048
     Dates: start: 20110505, end: 20110505
  11. REMERON [Suspect]
     Indication: DEPRESSION
     Dosage: SEE IMAGE
     Route: 048
     Dates: start: 20110505, end: 20110511
  12. REMERON [Suspect]
     Indication: DEPRESSION
     Dosage: SEE IMAGE
     Route: 048
     Dates: start: 20110112, end: 20110113
  13. REMERON [Suspect]
     Indication: DEPRESSION
     Dosage: SEE IMAGE
     Route: 048
     Dates: start: 20110114, end: 20110302
  14. REMERON [Suspect]
     Indication: DEPRESSION
     Dosage: SEE IMAGE
     Route: 048
     Dates: start: 20110419, end: 20110505
  15. REMERON [Suspect]
     Indication: DEPRESSION
     Dosage: SEE IMAGE
     Route: 048
     Dates: start: 20110114, end: 20110418
  16. REMERON [Suspect]
     Indication: DEPRESSION
     Dosage: SEE IMAGE
     Route: 048
     Dates: start: 20110511, end: 20110520
  17. REMERON [Suspect]
     Indication: DEPRESSION
     Dosage: SEE IMAGE
     Route: 048
     Dates: start: 20110113, end: 20110302
  18. CLOMIPRAMINE HYDROCHLORIDE [Concomitant]
  19. MAALOX ES [Concomitant]
  20. QUETAPINE [Concomitant]
  21. ATENOLOL [Concomitant]
  22. BUPROPION HCL [Concomitant]
  23. CYANOCOBALAMIN [Concomitant]
  24. DOCUSATE SODIUM [Concomitant]
  25. ACYCLOVIR [Concomitant]
  26. BENZTROPINE MESYLATE [Concomitant]
  27. CLONAZEPAM [Concomitant]
  28. CLONIDINE [Concomitant]
  29. HALOPERIDOL [Concomitant]
  30. HYDROXYZINE HCL [Concomitant]
  31. MILK OF MAGNESIUM [Concomitant]
  32. ZINC SULFATE [Concomitant]
  33. ZOLPIDEM [Concomitant]
  34. FOLIC ACID [Concomitant]
  35. LORATADINE [Concomitant]
  36. HYDROCERIN [Concomitant]
  37. LEVOTHYROXINE SODIUM [Concomitant]
  38. LITHIUM CARBONATE [Concomitant]
  39. LITHIUM CARBONATE ER [Concomitant]
  40. PRAMIPEXOLE DIHYDROCHLORIDE [Concomitant]
  41. DIPHENHYDRAMINE HCL [Concomitant]
  42. LIOTHYRONINE SODIUM [Concomitant]

REACTIONS (1)
  - HOSPITALISATION [None]
